FAERS Safety Report 6854541-8 (Version None)
Quarter: 2010Q3

REPORT INFORMATION
  Report Type: 
  Country: None (occurrence: None)
  Receive Date: 20100717
  Receipt Date: 20080108
  Transmission Date: 20110219
  Serious: No
  Sender: FDA-Public Use
  Company Number: US-PFIZER INC-2008003130

PATIENT
  Sex: Male
  Weight: 87.1 kg

DRUGS (4)
  1. CHANTIX [Suspect]
     Indication: SMOKING CESSATION THERAPY
     Dates: start: 20071201
  2. SPIRIVA [Concomitant]
  3. PRILOSEC [Concomitant]
  4. ZYRTEC [Concomitant]

REACTIONS (2)
  - INCREASED APPETITE [None]
  - WEIGHT INCREASED [None]
